FAERS Safety Report 10173873 (Version 1)
Quarter: 2014Q2

REPORT INFORMATION
  Report Type: Spontaneous
  Country: FR (occurrence: FR)
  Receive Date: 20140515
  Receipt Date: 20140515
  Transmission Date: 20141212
  Serious: Yes (Congenital Anomaly)
  Sender: FDA-Public Use
  Company Number: FR-B.I. PHARMACEUTICALS,INC./RIDGEFIELD-2014-BI-20329FF

PATIENT
  Age: 0 Day
  Sex: Male
  Weight: 2.4 kg

DRUGS (1)
  1. MICARDIS [Suspect]
     Indication: EXPOSURE DURING PREGNANCY
     Route: 064
     Dates: start: 20120110, end: 201202

REACTIONS (1)
  - Cleft lip and palate [Unknown]
